FAERS Safety Report 9932040 (Version 2)
Quarter: 2014Q1

REPORT INFORMATION
  Report Type: Spontaneous
  Country: US (occurrence: US)
  Receive Date: 20140228
  Receipt Date: 20140228
  Transmission Date: 20141002
  Serious: No
  Sender: FDA-Public Use
  Company Number: US-ABBVIE-13P-163-1133097-00

PATIENT
  Age: 63 Year
  Sex: Male
  Weight: 110.32 kg

DRUGS (24)
  1. ANDROGEL 1% [Suspect]
     Indication: BLOOD TESTOSTERONE DECREASED
     Dates: start: 201208, end: 201308
  2. ANDROGEL 1% [Suspect]
     Dates: start: 201308
  3. ANDROGEL STICK PACK 2.5G [Suspect]
     Indication: BLOOD TESTOSTERONE DECREASED
     Dates: start: 201306
  4. ALTACE [Concomitant]
     Indication: HYPERTENSION
  5. AMITIZA [Concomitant]
     Indication: GASTROINTESTINAL MOTILITY DISORDER
  6. BACTRIM [Concomitant]
     Indication: URINARY TRACT INFECTION
  7. COREG [Concomitant]
     Indication: HYPERTENSION
  8. VITAMIN B12 [Concomitant]
     Indication: VITAMIN B12 DEFICIENCY
  9. ERGOCALCIFEROL [Concomitant]
     Indication: VITAMIN D DEFICIENCY
  10. FLONASE [Concomitant]
     Indication: SINUS DISORDER
  11. KLOR-CON [Concomitant]
     Indication: MINERAL SUPPLEMENTATION
  12. LASIX [Concomitant]
     Indication: OEDEMA
  13. LASIX [Concomitant]
     Indication: HYPERTENSION
  14. NOVOLOG [Concomitant]
     Indication: DIABETES MELLITUS
  15. PROTONIX [Concomitant]
     Indication: GASTROOESOPHAGEAL REFLUX DISEASE
  16. PROVIGIL [Concomitant]
     Indication: PROPHYLAXIS
  17. PROVIGIL [Concomitant]
     Indication: SOMNOLENCE
  18. LEVOTHYROXINE [Concomitant]
     Indication: HYPOTHYROIDISM
  19. ALDARA [Concomitant]
     Indication: PAPILLOMA VIRAL INFECTION
  20. CLARIFOAM [Concomitant]
     Indication: WOUND
  21. SULFACETAMIDE [Concomitant]
     Indication: ROSACEA
  22. CUTIVATE [Concomitant]
     Indication: ECZEMA
  23. METROGEL [Concomitant]
     Indication: RASH
  24. SALEX [Concomitant]
     Indication: SKIN HYPERTROPHY

REACTIONS (2)
  - Incorrect drug dosage form administered [Unknown]
  - Blood testosterone decreased [Not Recovered/Not Resolved]
